FAERS Safety Report 9467326 (Version 2)
Quarter: 2013Q3

REPORT INFORMATION
  Report Type: Spontaneous
  Country: US (occurrence: US)
  Receive Date: 20130821
  Receipt Date: 20130904
  Transmission Date: 20140515
  Serious: Yes (Death, Other)
  Sender: FDA-Public Use
  Company Number: US-PFIZER INC-2013237855

PATIENT
  Age: 56 Year
  Sex: Male

DRUGS (11)
  1. CISPLATIN [Suspect]
     Indication: SQUAMOUS CELL CARCINOMA
     Dosage: UNK, CYCLIC
     Route: 065
  2. FLUOROURACIL [Suspect]
     Indication: SQUAMOUS CELL CARCINOMA
     Dosage: UNK, CYCLIC
     Route: 065
  3. DOCETAXEL [Suspect]
     Indication: SQUAMOUS CELL CARCINOMA
     Dosage: UNK, CYCLIC
     Route: 065
  4. HYDRALAZINE [Concomitant]
     Route: 065
  5. FUROSEMIDE [Concomitant]
     Route: 065
  6. LEVOTHYROXINE [Concomitant]
     Route: 065
  7. LISINOPRIL [Concomitant]
     Route: 065
  8. HYDROCHLOROTHIAZIDE [Concomitant]
     Route: 065
  9. METOPROLOL [Concomitant]
     Route: 065
  10. ATORVASTATIN [Concomitant]
     Route: 065
  11. AMIODARONE [Concomitant]
     Route: 065

REACTIONS (2)
  - Histiocytosis haematophagic [Fatal]
  - Shock [Fatal]
